FAERS Safety Report 16961882 (Version 2)
Quarter: 2019Q4

REPORT INFORMATION
  Report Type: Spontaneous
  Country: RO (occurrence: RO)
  Receive Date: 20191025
  Receipt Date: 20191031
  Transmission Date: 20200122
  Serious: Yes (Other)
  Sender: FDA-Public Use
  Company Number: RO-ASTRAZENECA-2019SF50351

PATIENT
  Age: 57 Year
  Sex: Male

DRUGS (10)
  1. LERIDIP [Concomitant]
  2. SORTIS [Concomitant]
     Active Substance: ATORVASTATIN
  3. BRILIQUE [Suspect]
     Active Substance: TICAGRELOR
     Indication: STENT PLACEMENT
     Route: 048
     Dates: start: 201902, end: 201907
  4. ASA [Concomitant]
     Active Substance: ASPIRIN
     Indication: ACUTE MYOCARDIAL INFARCTION
  5. ASA [Concomitant]
     Active Substance: ASPIRIN
     Indication: STENT PLACEMENT
  6. ATACAND [Concomitant]
     Active Substance: CANDESARTAN CILEXETIL
  7. BETALOC [Concomitant]
     Active Substance: METOPROLOL TARTRATE
  8. AMARYL [Concomitant]
     Active Substance: GLIMEPIRIDE
  9. BRILIQUE [Suspect]
     Active Substance: TICAGRELOR
     Indication: ACUTE MYOCARDIAL INFARCTION
     Route: 048
     Dates: start: 201902, end: 201907
  10. TENAXUM [Concomitant]
     Active Substance: RILMENIDINE

REACTIONS (2)
  - Gastritis erosive [Unknown]
  - Iron deficiency anaemia [Unknown]
